FAERS Safety Report 16453040 (Version 1)
Quarter: 2019Q2

REPORT INFORMATION
  Report Type: Spontaneous
  Country: US (occurrence: US)
  Receive Date: 20190619
  Receipt Date: 20190619
  Transmission Date: 20190711
  Serious: No
  Sender: FDA-Public Use
  Company Number: US-SA-2019SA161466

PATIENT
  Age: 57 Year
  Sex: Male
  Weight: 97.51 kg

DRUGS (1)
  1. DUPIXENT [Suspect]
     Active Substance: DUPILUMAB
     Indication: DERMATITIS ATOPIC
     Dosage: 300 MG, QOW
     Route: 058
     Dates: start: 20190506

REACTIONS (2)
  - Vision blurred [Unknown]
  - Rash [Unknown]

NARRATIVE: CASE EVENT DATE: 20190508
